FAERS Safety Report 10623503 (Version 3)
Quarter: 2015Q1

REPORT INFORMATION
  Report Type: Report from Study
  Country: US (occurrence: US)
  Receive Date: 20141203
  Receipt Date: 20150119
  Transmission Date: 20150720
  Serious: Yes (Hospitalization)
  Sender: FDA-Public Use
  Company Number: US-SA-2014SA139131

PATIENT
  Age: 35 Year
  Sex: Female

DRUGS (1)
  1. AUBAGIO [Suspect]
     Active Substance: TERIFLUNOMIDE
     Indication: MULTIPLE SCLEROSIS
     Route: 048
     Dates: start: 20140918, end: 20150109

REACTIONS (16)
  - Back pain [Unknown]
  - Sinusitis [Unknown]
  - Cough [Unknown]
  - Toothache [Recovered/Resolved]
  - Oral pain [Recovered/Resolved]
  - Decreased appetite [Not Recovered/Not Resolved]
  - Influenza [Unknown]
  - Nausea [Not Recovered/Not Resolved]
  - Dizziness [Unknown]
  - Diarrhoea [Not Recovered/Not Resolved]
  - Vomiting [Not Recovered/Not Resolved]
  - Dehydration [Not Recovered/Not Resolved]
  - Pain in extremity [Unknown]
  - Hypoaesthesia [Unknown]
  - Headache [Not Recovered/Not Resolved]
  - Nasopharyngitis [Unknown]

NARRATIVE: CASE EVENT DATE: 201409
